FAERS Safety Report 7979959-1 (Version None)
Quarter: 2011Q4

REPORT INFORMATION
  Report Type: 
  Country: None (occurrence: None)
  Receive Date: 20111208
  Receipt Date: 20111123
  Transmission Date: 20120403
  Serious: Yes (Hospitalization)
  Sender: FDA-Public Use
  Company Number: DSA_48266_2011

PATIENT
  Age: 82 Year
  Sex: Female

DRUGS (11)
  1. ASPIRIN [Concomitant]
  2. DILATREND (DILATREND-CARVEDILOL) 25 MG [Suspect]
     Indication: HYPERTENSION
     Dosage: (25 MG QD ORAL), (DF ORAL)
     Route: 048
     Dates: start: 20111104
  3. DILATREND (DILATREND-CARVEDILOL) 25 MG [Suspect]
     Indication: HYPERTENSION
     Dosage: (25 MG QD ORAL), (DF ORAL)
     Route: 048
     Dates: start: 20080101, end: 20111103
  4. ENALAPRIL MALEATE [Suspect]
     Indication: HYPERTENSION
     Dosage: (20 MG QD ORAL), (DF ORAL)
     Route: 048
     Dates: start: 20111104
  5. ENALAPRIL MALEATE [Suspect]
     Indication: HYPERTENSION
     Dosage: (20 MG QD ORAL), (DF ORAL)
     Route: 048
     Dates: start: 20080101, end: 20111103
  6. URSACOL [Concomitant]
  7. ALDACTONE [Suspect]
     Indication: HYPERTENSION
     Dosage: (25 MG QD ORAL)
     Route: 048
     Dates: start: 20080101, end: 20111103
  8. CREON [Concomitant]
  9. IGROTON (IGROTON-CHLORTHALIDONE) 25 MG (NOT SPECIFIED) [Suspect]
     Indication: HYPERTENSION
     Dosage: (25 MG QD ORAL)
     Route: 048
     Dates: start: 20080101, end: 20111103
  10. SIMVASTATIN [Concomitant]
  11. NITRODERM [Concomitant]

REACTIONS (4)
  - SYNCOPE [None]
  - HYPOTENSION [None]
  - FALL [None]
  - PRESYNCOPE [None]
